FAERS Safety Report 9308183 (Version 1)
Quarter: 2013Q2

REPORT INFORMATION
  Report Type: Report from Study
  Country: US (occurrence: US)
  Receive Date: 20130524
  Receipt Date: 20130524
  Transmission Date: 20140414
  Serious: Yes (Hospitalization)
  Sender: FDA-Public Use
  Company Number: US-PFIZER INC-2013155635

PATIENT
  Age: 72 Year
  Sex: Male

DRUGS (6)
  1. MEDROL [Suspect]
     Indication: IMMUNOSUPPRESSION
     Dosage: 8 MG DAILY
  2. MYCOPHENOLATE MOFETIL [Suspect]
     Indication: IMMUNOSUPPRESSION
     Dosage: 1 GRAM BID
  3. BELATACEPT [Suspect]
     Indication: RENAL TRANSPLANT
     Dosage: 10MG/KG: DAYS 1 AND 5, WEEKS 2, 4, 6, 8, 10,12, 16, 20, AND 24
     Route: 042
     Dates: start: 20070405
  4. BELATACEPT [Suspect]
     Dosage: 5 MG/KG EVERY 4 WEEKS, Q 4 WEEKS, 36 MONTHS (ST)
     Route: 042
  5. BELATACEPT [Suspect]
     Dosage: 5 MG/KG EVERY 4 WEEKS, Q 4 WEEKS, 24 MONTHS (LT)
     Route: 042
     Dates: end: 20120906
  6. EVEROLIMUS [Concomitant]
     Indication: IMMUNOSUPPRESSION
     Dosage: 2 MG BID
     Dates: start: 20120912, end: 20121126

REACTIONS (3)
  - Cytomegalovirus infection [Unknown]
  - Cryptococcosis [Recovered/Resolved]
  - Blood creatinine increased [Recovered/Resolved]
